FAERS Safety Report 10410435 (Version 2)
Quarter: 2015Q1

REPORT INFORMATION
  Report Type: Spontaneous
  Country: US (occurrence: US)
  Receive Date: 20140826
  Receipt Date: 20150330
  Transmission Date: 20150720
  Serious: Yes (Hospitalization, Other)
  Sender: FDA-Public Use
  Company Number: US-GLAXOSMITHKLINE-A1083054A

PATIENT
  Age: 57 Year
  Sex: Male
  Weight: 86.4 kg

DRUGS (14)
  1. COREG [Suspect]
     Active Substance: CARVEDILOL
     Indication: PRODUCT USED FOR UNKNOWN INDICATION
     Dosage: 25 MG PER DAYPREVIOUSLY RECEIVED 12.5 MG, UNKNOWN DOSING, START DATE OF 04 DEC 2009
     Route: 065
  2. ADVAIR HFA [Suspect]
     Active Substance: FLUTICASONE PROPIONATE\SALMETEROL XINAFOATE
     Indication: PRODUCT USED FOR UNKNOWN INDICATION
     Dosage: 250/50 MCG, 1 PUFF TWICE PER DAY
     Route: 055
  3. NITROSTAT [Concomitant]
     Active Substance: NITROGLYCERIN
  4. LASIX [Concomitant]
     Active Substance: FUROSEMIDE
  5. LISINOPRIL. [Concomitant]
     Active Substance: LISINOPRIL
  6. ALBUTEROL. [Concomitant]
     Active Substance: ALBUTEROL
  7. ATORVASTATIN CALCIUM. [Concomitant]
     Active Substance: ATORVASTATIN CALCIUM
  8. ASPIRIN. [Concomitant]
     Active Substance: ASPIRIN
  9. TYLENOL [Concomitant]
     Active Substance: ACETAMINOPHEN
  10. NEURONTIN [Concomitant]
     Active Substance: GABAPENTIN
  11. CRESTOR [Concomitant]
     Active Substance: ROSUVASTATIN CALCIUM
  12. COUMADIN [Concomitant]
     Active Substance: WARFARIN SODIUM
  13. ATIVAN [Concomitant]
     Active Substance: LORAZEPAM
  14. ZOLOFT [Concomitant]
     Active Substance: SERTRALINE HYDROCHLORIDE

REACTIONS (7)
  - Skin discolouration [Recovered/Resolved]
  - Limb discomfort [Not Recovered/Not Resolved]
  - Hospitalisation [Unknown]
  - Foot fracture [Recovered/Resolved]
  - Myalgia [Not Recovered/Not Resolved]
  - Muscle strain [Not Recovered/Not Resolved]
  - Pain in extremity [Not Recovered/Not Resolved]

NARRATIVE: CASE EVENT DATE: 201307
